FAERS Safety Report 6027241-4 (Version None)
Quarter: 2009Q1

REPORT INFORMATION
  Report Type: 
  Country: None (occurrence: None)
  Receive Date: 20090105
  Receipt Date: 20081229
  Transmission Date: 20090719
  Serious: Yes (Hospitalization, Disabling)
  Sender: FDA-Public Use
  Company Number: PHHO2008JP08313

PATIENT
  Sex: Female
  Weight: 68 kg

DRUGS (12)
  1. CERTICAN [Suspect]
     Indication: RENAL TRANSPLANT
     Dosage: 1.5 MG / DAY
     Route: 048
     Dates: start: 20080530, end: 20080604
  2. CERTICAN [Suspect]
     Dosage: 3 MG / DAY
     Route: 048
     Dates: start: 20080605
  3. NEORAL [Suspect]
     Indication: RENAL TRANSPLANT
     Dosage: 550 MG / DAY
     Route: 048
     Dates: start: 20080527
  4. SIMULECT [Suspect]
     Indication: RENAL TRANSPLANT
     Dosage: 20 MG, (DAY 0)
     Dates: start: 20080529, end: 20080529
  5. SIMULECT [Suspect]
     Dosage: 20 MG, (DAY 4)
     Route: 042
     Dates: start: 20080602, end: 20080602
  6. MEDROL [Suspect]
     Indication: RENAL TRANSPLANT
     Dosage: 20 MG / DAY
     Route: 048
     Dates: start: 20080528
  7. RABEPRAZOLE SODIUM [Concomitant]
     Indication: GASTRITIS PROPHYLAXIS
     Dosage: 10 MG / DAY
     Route: 048
     Dates: start: 20080528
  8. MICARDIS [Concomitant]
     Indication: HYPERTENSION
     Dosage: 40 MG / DAY
     Route: 048
     Dates: start: 20080531
  9. NORVASC [Concomitant]
     Indication: HYPERTENSION
     Dosage: 10 MG / DAY
     Route: 048
  10. TAZOCIN [Concomitant]
     Dosage: 2 G / DAY
     Route: 042
     Dates: start: 20080615, end: 20080630
  11. VANCOMYCIN [Concomitant]
     Dosage: 1.5 G / DAY
     Route: 042
     Dates: start: 20080624
  12. ADALAT [Concomitant]
     Indication: HYPERTENSION
     Dosage: UNK
     Dates: start: 20080923

REACTIONS (10)
  - ARTHRALGIA [None]
  - BACTERIA WOUND IDENTIFIED [None]
  - C-REACTIVE PROTEIN INCREASED [None]
  - GAIT DISTURBANCE [None]
  - METHICILLIN-RESISTANT STAPHYLOCOCCAL AUREUS TEST POSITIVE [None]
  - OSTEONECROSIS [None]
  - PYREXIA [None]
  - WHITE BLOOD CELL DISORDER [None]
  - WOUND INFECTION STAPHYLOCOCCAL [None]
  - WOUND SECRETION [None]
